FAERS Safety Report 6274749-2 (Version None)
Quarter: 2009Q3

REPORT INFORMATION
  Report Type: 
  Country: None (occurrence: None)
  Receive Date: 20090721
  Receipt Date: 20070515
  Transmission Date: 20100115
  Serious: Yes (Other)
  Sender: FDA-Public Use
  Company Number: US-ASTRAZENECA-2006UW25139

PATIENT
  Age: 51 Year
  Sex: Male
  Weight: 93.4 kg

DRUGS (17)
  1. SEROQUEL [Suspect]
     Indication: SCHIZOPHRENIA
     Route: 048
     Dates: start: 19970101, end: 20060701
  2. SEROQUEL [Suspect]
     Route: 048
     Dates: start: 20021023
  3. RISPERDAL [Concomitant]
     Dates: start: 19940101
  4. DILTIAZEM [Concomitant]
     Indication: HYPERTENSION
     Dosage: 240-360 MG
     Route: 048
     Dates: start: 20021023
  5. HYDROCHLOROTHIAZIDE [Concomitant]
     Indication: HYPERTENSION
     Route: 048
     Dates: start: 20031117
  6. ZOCOR [Concomitant]
     Indication: HYPERLIPIDAEMIA
     Route: 048
     Dates: start: 20031117
  7. LISINOPRIL [Concomitant]
     Indication: HYPERTENSION
     Dosage: 10-40 MG
     Dates: start: 20000828
  8. THORAZINE [Concomitant]
     Indication: HALLUCINATION
     Dates: start: 19930609
  9. ATIVAN [Concomitant]
     Indication: AGITATION
     Dosage: 0.5-2 MG
     Route: 048
     Dates: start: 19930609
  10. RESTORIL [Concomitant]
     Indication: SLEEP DISORDER
     Dates: start: 19930609
  11. COGENTIN [Concomitant]
     Indication: EXTRAPYRAMIDAL DISORDER
     Dates: start: 19930609
  12. BENADRYL [Concomitant]
     Dates: start: 19930610
  13. ETODOLAC [Concomitant]
     Indication: ARTHRALGIA
     Dosage: 400-800 MG
     Dates: start: 20030122
  14. NAVANE [Concomitant]
     Dosage: 2-4 MG
     Dates: start: 19930609
  15. TRILAFON [Concomitant]
     Indication: AGITATION
     Dates: start: 19930609
  16. TYLENOL (CAPLET) [Concomitant]
     Indication: PAIN
     Dates: start: 19950814
  17. INSULIN-NOVOLIN [Concomitant]
     Dosage: 70/30
     Dates: start: 20000114

REACTIONS (5)
  - BLOOD CHOLESTEROL INCREASED [None]
  - DIABETES MELLITUS [None]
  - DIABETIC EYE DISEASE [None]
  - HYPERLIPIDAEMIA [None]
  - TYPE 1 DIABETES MELLITUS [None]
